FAERS Safety Report 8160209-0 (Version None)
Quarter: 2012Q1

REPORT INFORMATION
  Report Type: 
  Country: None (occurrence: None)
  Receive Date: 20120223
  Receipt Date: 20120220
  Transmission Date: 20120608
  Serious: Yes (Hospitalization)
  Sender: FDA-Public Use
  Company Number: US-PFIZER INC-2011177602

PATIENT
  Sex: Female

DRUGS (4)
  1. NOVOLOG [Concomitant]
  2. AMIODARONE HCL [Suspect]
     Dosage: UNK
     Route: 065
  3. HUMULIN 70/30 [Suspect]
     Indication: TYPE 2 DIABETES MELLITUS
     Dosage: 85 IU, UNK
     Route: 065
     Dates: start: 20110420
  4. BLINDED THERAPY [Suspect]
     Indication: TYPE 2 DIABETES MELLITUS
     Dosage: UNK
     Route: 065
     Dates: start: 20101019, end: 20110712

REACTIONS (2)
  - ATRIAL FLUTTER [None]
  - HYPERTHYROIDISM [None]
